FAERS Safety Report 16850726 (Version 1)
Quarter: 2019Q3

REPORT INFORMATION
  Report Type: Spontaneous
  Country: US (occurrence: US)
  Receive Date: 20190925
  Receipt Date: 20190925
  Transmission Date: 20191005
  Serious: No
  Sender: FDA-Public Use
  Company Number: US-THERAPEUTICSMD-2019TMD01846

PATIENT
  Sex: Female
  Weight: 62.13 kg

DRUGS (7)
  1. FLORAJEN [Suspect]
     Active Substance: PROBIOTICS NOS
  2. LISINOPRIL. [Concomitant]
     Active Substance: LISINOPRIL
     Dosage: 20 MG IN THE MORNING
  3. LISINOPRIL. [Concomitant]
     Active Substance: LISINOPRIL
     Dosage: 10 MG AT NIGHT
  4. FOSAMAX [Concomitant]
     Active Substance: ALENDRONATE SODIUM
     Indication: OSTEOPOROSIS
     Dosage: 70 MG, 1X/WEEK
  5. VITAMIN C [Concomitant]
     Active Substance: ASCORBIC ACID
     Dosage: UNK, 1X/DAY
  6. CRANBERRY PILL [Concomitant]
     Active Substance: CRANBERRY
     Dosage: UNK, 1X/DAY
  7. IMVEXXY [Suspect]
     Active Substance: ESTRADIOL
     Indication: VAGINAL EROSION
     Dosage: 4 ?G EVERY 3 DAYS ^OR SOMETHING^ AT NIGHT IN BED
     Route: 067

REACTIONS (3)
  - Feeling abnormal [Recovered/Resolved]
  - Headache [Recovered/Resolved]
  - Off label use [Recovered/Resolved]
